FAERS Safety Report 5623184-6 (Version None)
Quarter: 2008Q1

REPORT INFORMATION
  Report Type: 
  Country: None (occurrence: None)
  Receive Date: 20080207
  Receipt Date: 20080201
  Transmission Date: 20080703
  Serious: Yes (Other)
  Sender: FDA-Public Use
  Company Number: S08-USA-00397-01

PATIENT
  Age: 39 Year
  Sex: Female

DRUGS (5)
  1. CELEXA [Suspect]
     Indication: BACK PAIN
     Dosage: 60 MG QD PO
     Route: 048
     Dates: start: 20060101
  2. CELEXA [Suspect]
     Indication: NECK PAIN
     Dosage: 60 MG QD PO
     Route: 048
     Dates: start: 20060101
  3. ALCOHOL [Suspect]
  4. LEVOTHYROXINE SODIUM [Concomitant]
  5. FLEXERIL [Concomitant]

REACTIONS (3)
  - ALCOHOL INTERACTION [None]
  - FATIGUE [None]
  - SOMNOLENCE [None]
